FAERS Safety Report 11750575 (Version 2)
Quarter: 2016Q1

REPORT INFORMATION
  Report Type: Spontaneous
  Country: US (occurrence: US)
  Receive Date: 20151118
  Receipt Date: 20160120
  Transmission Date: 20160525
  Serious: Yes (Hospitalization, Other)
  Sender: FDA-Public Use
  Company Number: US-AMGEN-USASP2015119945

PATIENT
  Age: 88 Year
  Sex: Female
  Weight: 45.81 kg

DRUGS (5)
  1. LOSARTAN. [Concomitant]
     Active Substance: LOSARTAN
     Indication: BLOOD PRESSURE ABNORMAL
     Dosage: 20 MG, AS NEEDED
     Route: 048
  2. PROCRIT [Suspect]
     Active Substance: ERYTHROPOIETIN
     Dosage: UNK, ONCE WEEKLY
     Route: 058
     Dates: start: 2014
  3. HYDROCHLOROTHIAZIDE. [Concomitant]
     Active Substance: HYDROCHLOROTHIAZIDE
     Indication: LUNG DISORDER
     Dosage: UNK UNK, ONCE DAILY
     Route: 048
     Dates: start: 2013
  4. WARFARIN [Concomitant]
     Active Substance: WARFARIN
     Indication: ATRIAL FIBRILLATION
     Dosage: 4 MG, ONCE DAILY
     Route: 048
  5. PROCRIT [Suspect]
     Active Substance: ERYTHROPOIETIN
     Indication: HAEMOGLOBIN DECREASED
     Dosage: UNK, TWICE MONTHLY
     Route: 058
     Dates: end: 2014

REACTIONS (15)
  - Atrial fibrillation [Not Recovered/Not Resolved]
  - Lymphoedema [Not Recovered/Not Resolved]
  - Peripheral swelling [Not Recovered/Not Resolved]
  - Recurrent cancer [Unknown]
  - Asthenia [Not Recovered/Not Resolved]
  - Hypokinesia [Not Recovered/Not Resolved]
  - Pleural effusion [Not Recovered/Not Resolved]
  - Unevaluable event [Unknown]
  - Confusional state [Recovered/Resolved]
  - Renal disorder [Unknown]
  - Decreased appetite [Not Recovered/Not Resolved]
  - Inappropriate schedule of drug administration [Recovered/Resolved]
  - Weight abnormal [Not Recovered/Not Resolved]
  - Drug dose omission [Not Recovered/Not Resolved]
  - Dehydration [Unknown]

NARRATIVE: CASE EVENT DATE: 2014
